FAERS Safety Report 6571963-3 (Version None)
Quarter: 2010Q1

REPORT INFORMATION
  Report Type: 
  Country: None (occurrence: None)
  Receive Date: 20100205
  Receipt Date: 20100122
  Transmission Date: 20100710
  Serious: Yes (Other)
  Sender: FDA-Public Use
  Company Number: GB-JNJCH-2009032710

PATIENT
  Sex: Female

DRUGS (1)
  1. LISTERINE COOL CITRUS [Suspect]
     Indication: DRUG USE FOR UNKNOWN INDICATION
     Dosage: TEXT:UNSPECIFIED
     Route: 050
     Dates: start: 20091210, end: 20091220

REACTIONS (4)
  - BURNING SENSATION [None]
  - GINGIVAL ABSCESS [None]
  - GINGIVAL PAIN [None]
  - GINGIVAL SWELLING [None]
